FAERS Safety Report 8120120-8 (Version None)
Quarter: 2012Q1

REPORT INFORMATION
  Report Type: 
  Country: None (occurrence: None)
  Receive Date: 20120207
  Receipt Date: 20120127
  Transmission Date: 20120608
  Serious: Yes (Other)
  Sender: FDA-Public Use
  Company Number: US-JNJFOC-20111105648

PATIENT
  Sex: Male

DRUGS (9)
  1. RAMIPRIL [Concomitant]
     Indication: BLOOD PRESSURE
  2. ALBUTEROL [Concomitant]
     Indication: ASTHMA
  3. METHOTREXATE [Concomitant]
     Indication: PSORIATIC ARTHROPATHY
  4. SEREVENT [Concomitant]
     Indication: ASTHMA
  5. SIMVASTATIN [Concomitant]
     Indication: BLOOD CHOLESTEROL
  6. AZMACORT [Concomitant]
     Indication: ASTHMA
  7. PREDNISONE [Concomitant]
     Indication: PSORIATIC ARTHROPATHY
  8. REMICADE [Suspect]
     Indication: PSORIATIC ARTHROPATHY
     Dosage: 8 (UNITS/MONTHLY)
     Route: 042
  9. OMEPRAZOLE [Concomitant]
     Indication: GASTROOESOPHAGEAL REFLUX DISEASE

REACTIONS (3)
  - GINGIVAL DISORDER [None]
  - TOOTH LOSS [None]
  - PERIODONTAL DISEASE [None]
